FAERS Safety Report 21201820 (Version 1)
Quarter: 2022Q3

REPORT INFORMATION
  Report Type: Spontaneous
  Country: US (occurrence: US)
  Receive Date: 20220811
  Receipt Date: 20220811
  Transmission Date: 20221026
  Serious: No
  Sender: FDA-Public Use
  Company Number: US-AURINIA PHARMACEUTICALS INC.-AUR-000970

PATIENT
  Sex: Female

DRUGS (1)
  1. LUPKYNIS [Suspect]
     Active Substance: VOCLOSPORIN
     Indication: Lupus nephritis
     Dosage: 23.7 MILLIGRAM, BID
     Route: 048
     Dates: start: 20211106

REACTIONS (7)
  - Pain in extremity [Unknown]
  - Obesity [Unknown]
  - Vitamin D deficiency [Unknown]
  - Laboratory test abnormal [Unknown]
  - Anuria [Unknown]
  - Proteinuria [Unknown]
  - Fatigue [Recovered/Resolved]
